FAERS Safety Report 6317644-2 (Version None)
Quarter: 2009Q3

REPORT INFORMATION
  Report Type: 
  Country: None (occurrence: None)
  Receive Date: 20090820
  Receipt Date: 20090820
  Transmission Date: 20100115
  Serious: Yes (Disabling)
  Sender: FDA-Public Use
  Company Number: None

PATIENT
  Age: 51 Year
  Sex: Female
  Weight: 62.7 kg

DRUGS (1)
  1. EFUDEX SMALL AMOUNT ON BOTTOM LIP 2X DAILY FOR 2 WKS. [Suspect]
     Indication: ACTINIC KERATOSIS
     Dosage: SMALL AMOUNT ON BOTTOM LIP 2X DAILY FOR 2  WKS. ON OCCASION AS NEEDED
     Dates: start: 20070101, end: 20080101

REACTIONS (1)
  - AGEUSIA [None]
